FAERS Safety Report 24765863 (Version 1)
Quarter: 2024Q4

REPORT INFORMATION
  Report Type: Spontaneous
  Country: US (occurrence: US)
  Receive Date: 20241223
  Receipt Date: 20241223
  Transmission Date: 20250114
  Serious: Yes (Other)
  Sender: VISTAPHARM
  Company Number: US-VISTAPHARM-2024-US-067566

PATIENT
  Age: 49 Year
  Sex: Male

DRUGS (1)
  1. METHADONE HYDROCHLORIDE [Suspect]
     Active Substance: METHADONE HYDROCHLORIDE
     Indication: Drug dependence
     Dosage: 110 MG DAILY

REACTIONS (1)
  - Hypoglycaemia [Unknown]
